FAERS Safety Report 5033592-2 (Version None)
Quarter: 2006Q2

REPORT INFORMATION
  Report Type: 
  Country: None (occurrence: None)
  Receive Date: 20060623
  Receipt Date: 20060609
  Transmission Date: 20061013
  Serious: Yes (Disabling, Other)
  Sender: FDA-Public Use
  Company Number: US-AMGEN-STX182446

PATIENT
  Sex: Female
  Weight: 82.6 kg

DRUGS (4)
  1. ENBREL [Suspect]
     Indication: SPONDYLOARTHROPATHY
     Route: 058
     Dates: start: 20050201, end: 20050923
  2. MESALAMINE [Concomitant]
     Indication: CROHN'S DISEASE
     Route: 048
  3. MULTIVITAMIN [Concomitant]
  4. ZINC [Concomitant]

REACTIONS (2)
  - DYSAESTHESIA [None]
  - MULTIPLE SCLEROSIS [None]
